FAERS Safety Report 7693917-6 (Version None)
Quarter: 2011Q3

REPORT INFORMATION
  Report Type: 
  Country: None (occurrence: None)
  Receive Date: 20110819
  Receipt Date: 20110809
  Transmission Date: 20111222
  Serious: Yes (Hospitalization)
  Sender: FDA-Public Use
  Company Number: NL-SANOFI-AVENTIS-2011SA044113

PATIENT
  Age: 69 Year
  Sex: Female
  Weight: 78 kg

DRUGS (15)
  1. DRONEDARONE HCL [Suspect]
     Indication: ATRIAL FIBRILLATION
     Route: 048
     Dates: start: 20110415
  2. MONOCEDOCARD [Concomitant]
  3. METOPROLOL [Concomitant]
     Route: 065
  4. ACENOCOUMAROL [Concomitant]
     Route: 065
  5. AMLODIPINE [Concomitant]
     Route: 065
     Dates: start: 20110510, end: 20110518
  6. IRBESARTAN [Concomitant]
     Route: 065
  7. IRBESARTAN [Concomitant]
  8. RANITIDINE [Concomitant]
  9. BUMETANIDE [Concomitant]
     Route: 065
  10. CRESTOR [Concomitant]
     Route: 065
  11. BUMETANIDE [Concomitant]
     Route: 065
     Dates: start: 20110504, end: 20110518
  12. DOXAZOSIN MESYLATE [Concomitant]
     Route: 065
     Dates: end: 20110518
  13. AMOXICILLIN AND CLAVULANATE POTASSIUM [Concomitant]
     Route: 065
     Dates: start: 20110509, end: 20110519
  14. CLOPIDOGREL [Concomitant]
     Route: 065
  15. CICLESONIDE [Concomitant]

REACTIONS (1)
  - CARDIAC FAILURE [None]
